FAERS Safety Report 20941942 (Version 1)
Quarter: 2022Q2

REPORT INFORMATION
  Report Type: Spontaneous
  Country: ES (occurrence: ES)
  Receive Date: 20220610
  Receipt Date: 20220610
  Transmission Date: 20220721
  Serious: Yes (Other)
  Sender: FDA-Public Use
  Company Number: ES-MENARINI-ES-MEN-082587

PATIENT
  Age: 65 Year
  Sex: Female
  Weight: 72.6 kg

DRUGS (8)
  1. NAPROXEN SODIUM [Suspect]
     Active Substance: NAPROXEN SODIUM
     Indication: Arthralgia
     Dosage: 550 MILLIGRAM, TWO TIMES A DAY
     Route: 065
  2. ALDACTONE [Suspect]
     Active Substance: SPIRONOLACTONE
     Indication: Hypertension
     Dosage: 25 MILLIGRAM, TWO TIMES A DAY
     Route: 048
  3. AMLODIPINE BESYLATE\HYDROCHLOROTHIAZIDE\OLMESARTAN MEDOXOMIL [Suspect]
     Active Substance: AMLODIPINE BESYLATE\HYDROCHLOROTHIAZIDE\OLMESARTAN MEDOXOMIL
     Indication: Hypertension
     Dosage: 40/10/25MG (40/10/25 MG, 1 IN D)
     Route: 048
  4. LYRICA [Concomitant]
     Active Substance: PREGABALIN
     Indication: Neuralgia
     Dosage: 75 MILLIGRAM, TWO TIMES A DAY
     Route: 065
  5. DIAZEPAN PRODES [Concomitant]
     Indication: Anxiety
     Dosage: 5 MILLIGRAM, AS NECESSARY
     Route: 065
  6. GELOTRADOL [Concomitant]
     Indication: Neuralgia
     Dosage: 150 MILLIGRAM, ONCE A DAY
     Route: 065
  7. FOSFOMYCIN SODIUM [Concomitant]
     Active Substance: FOSFOMYCIN SODIUM
     Indication: Urinary tract infection
     Dosage: 500 MILLIGRAM, 3 TIMES A DAY
     Route: 065
  8. OMEPRAZOL CINFA [Concomitant]
     Indication: Prophylaxis
     Dosage: 20 MILLIGRAM, ONCE A DAY
     Route: 065

REACTIONS (9)
  - Dizziness [Recovered/Resolved]
  - Diarrhoea [Recovered/Resolved]
  - Dyspepsia [Recovered/Resolved]
  - Asthenia [Recovered/Resolved]
  - Weight decreased [Recovered/Resolved]
  - Intentional product misuse [Unknown]
  - Underdose [Unknown]
  - Labelled drug-drug interaction medication error [Recovered/Resolved]
  - Wrong technique in product usage process [Unknown]
